FAERS Safety Report 6766658-7 (Version None)
Quarter: 2010Q2

REPORT INFORMATION
  Report Type: 
  Country: None (occurrence: None)
  Receive Date: 20100611
  Receipt Date: 20100601
  Transmission Date: 20101027
  Serious: Yes (Hospitalization)
  Sender: FDA-Public Use
  Company Number: CH-ELI_LILLY_AND_COMPANY-CH201006001859

PATIENT
  Sex: Male
  Weight: 93 kg

DRUGS (1)
  1. EFFIENT [Suspect]
     Indication: ACUTE MYOCARDIAL INFARCTION
     Dates: start: 20100401

REACTIONS (3)
  - APPENDICITIS [None]
  - ILEUS PARALYTIC [None]
  - PNEUMONIA [None]
